FAERS Safety Report 14158786 (Version 1)
Quarter: 2017Q4

REPORT INFORMATION
  Report Type: Spontaneous
  Country: JP (occurrence: JP)
  Receive Date: 20171103
  Receipt Date: 20171103
  Transmission Date: 20180321
  Serious: Yes (Life-Threatening, Hospitalization, Other)
  Sender: FDA-Public Use
  Company Number: JP-LUPIN PHARMACEUTICALS INC.-2017-02107

PATIENT
  Age: 75 Year
  Sex: Male

DRUGS (4)
  1. POLYETHYLENE GLYCOL 3350 POWDER KREMERIS URBAN PHARMACEUTICAL [Suspect]
     Active Substance: POLYETHYLENE GLYCOL 3350
     Dosage: 1 L, UNK
     Route: 048
  2. POLYETHYLENE GLYCOL 3350 POWDER KREMERIS URBAN PHARMACEUTICAL [Suspect]
     Active Substance: POLYETHYLENE GLYCOL 3350
     Indication: BOWEL PREPARATION
     Dosage: 2 L, UNK
     Route: 048
  3. APIXABAN [Concomitant]
     Active Substance: APIXABAN
     Indication: PRODUCT USED FOR UNKNOWN INDICATION
     Dosage: UNK
     Route: 065
  4. INSULIN [Concomitant]
     Active Substance: INSULIN NOS
     Indication: PRODUCT USED FOR UNKNOWN INDICATION
     Dosage: UNK
     Route: 065

REACTIONS (3)
  - Septic shock [Recovering/Resolving]
  - Citrobacter infection [Recovering/Resolving]
  - Bacteraemia [Recovering/Resolving]
